FAERS Safety Report 21133581 (Version 1)
Quarter: 2022Q3

REPORT INFORMATION
  Report Type: Spontaneous
  Country: JP (occurrence: JP)
  Receive Date: 20220726
  Receipt Date: 20220726
  Transmission Date: 20221027
  Serious: Yes (Other)
  Sender: FDA-Public Use
  Company Number: JP-JNJFOC-20220749457

PATIENT

DRUGS (2)
  1. TRABECTEDIN [Interacting]
     Active Substance: TRABECTEDIN
     Indication: Soft tissue sarcoma
     Route: 041
  2. APREPITANT [Interacting]
     Active Substance: APREPITANT
     Indication: Nausea
     Route: 048

REACTIONS (4)
  - Myelosuppression [Unknown]
  - Febrile neutropenia [Unknown]
  - Nausea [Recovering/Resolving]
  - Drug interaction [Unknown]
